FAERS Safety Report 26160803 (Version 1)
Quarter: 2025Q4

REPORT INFORMATION
  Report Type: Spontaneous
  Country: JP (occurrence: JP)
  Receive Date: 20251216
  Receipt Date: 20251216
  Transmission Date: 20260118
  Serious: Yes (Hospitalization)
  Sender: ABBVIE
  Company Number: JP-ABBVIE-6590371

PATIENT
  Sex: Male

DRUGS (2)
  1. HUMIRA [Suspect]
     Active Substance: ADALIMUMAB
     Indication: Colitis ulcerative
     Dosage: SOLUTION FOR INJECTION IN PRE-FILLED PEN. ?FORM STRENGTH: 40 MILLIGRAM
     Route: 058
     Dates: start: 2020, end: 20251128
  2. AZATHIOPRINE [Concomitant]
     Active Substance: AZATHIOPRINE
     Indication: Colitis ulcerative
     Dosage: 50 MILLIGRAM
     Route: 048

REACTIONS (4)
  - Diarrhoea [Unknown]
  - Clostridium difficile infection [Recovering/Resolving]
  - Campylobacter infection [Recovering/Resolving]
  - Gastrointestinal inflammation [Unknown]
